FAERS Safety Report 4726123-5 (Version None)
Quarter: 2005Q3

REPORT INFORMATION
  Report Type: 
  Country: None (occurrence: None)
  Receive Date: 20050725
  Receipt Date: 20050725
  Transmission Date: 20060218
  Serious: Yes (Other)
  Sender: FDA-Public Use
  Company Number: None

PATIENT
  Age: 42 Year
  Sex: Female
  Weight: 70.3075 kg

DRUGS (2)
  1. FENTANYL [Suspect]
     Indication: INTERVERTEBRAL DISC DISORDER
     Dosage: 50 MCG IV
     Route: 042
     Dates: start: 20050404
  2. BENADRYL [Concomitant]

REACTIONS (2)
  - INFUSION RELATED REACTION [None]
  - RASH MACULAR [None]
